FAERS Safety Report 15372948 (Version 2)
Quarter: 2018Q3

REPORT INFORMATION
  Report Type: Spontaneous
  Country: NL (occurrence: NL)
  Receive Date: 20180912
  Receipt Date: 20180914
  Transmission Date: 20181010
  Serious: Yes (Hospitalization)
  Sender: FDA-Public Use
  Company Number: NL-TEVA-2018-NL-953776

PATIENT
  Age: 75 Year
  Sex: Male
  Weight: 68 kg

DRUGS (10)
  1. NICOTINE PLEISTER  7MG/24UUR (NICOTINEL/NICOPATCH); TRANSDERML [Concomitant]
     Dosage: 1 X PER DAY 1 PIECE
  2. SALBUTAMOL AEROSOL 100UG/DO 200DO INHALATOR [Concomitant]
     Dosage: 300 MICROGRAM DAILY;
  3. PARACETAMOL TABLET 1000MG [Concomitant]
     Dosage: 4 X PER DAY 1 PIECE
  4. LANETTECREME MET VASELINE 50%; [Concomitant]
  5. RIVAROXABAN TABLET 20MG [Concomitant]
     Active Substance: RIVAROXABAN
     Dosage: 20 MILLIGRAM DAILY;
  6. COLECALCIFEROL TABLET 800IE [Concomitant]
     Dosage: 800 IU (INTERNATIONAL UNIT) DAILY; 1 X PER DAG 1 STUK
  7. CLEMASTINE TABLET 1MG [Concomitant]
     Dosage: 2 MILLIGRAM DAILY;
  8. LORAZEPAM TABLET 1MG [Concomitant]
     Dosage: IF NECESSARY, REPEAT 1 X A DAY 1 PIECE IF NECESSARY UNTIL QUIET
  9. LAMOTRIGINE. [Suspect]
     Active Substance: LAMOTRIGINE
     Indication: EPILEPSY
     Dosage: 25 MILLIGRAM DAILY;
     Dates: start: 20180705, end: 20180719
  10. CEFUROXIM INJECTIEPOEDER 1500MG FL [Concomitant]
     Dosage: 4500 MILLIGRAM DAILY;

REACTIONS (5)
  - Eosinophilia [Recovered/Resolved]
  - Face oedema [Recovered/Resolved]
  - Drug reaction with eosinophilia and systemic symptoms [Recovered/Resolved]
  - Blood pressure decreased [Recovered/Resolved]
  - Rash [Recovered/Resolved]

NARRATIVE: CASE EVENT DATE: 20180718
